FAERS Safety Report 6371890-0 (Version None)
Quarter: 2009Q3

REPORT INFORMATION
  Report Type: 
  Country: None (occurrence: None)
  Receive Date: 20090918
  Receipt Date: 20090918
  Transmission Date: 20100115
  Serious: Yes (Other)
  Sender: FDA-Public Use
  Company Number: None

PATIENT
  Age: 51 Year
  Sex: Male
  Weight: 77.1115 kg

DRUGS (1)
  1. TRIMETHOPRIM-SULFAMETHOXAZOLE [Suspect]
     Indication: PROSTATITIS
     Dosage: 800 MG TWICE DAILY PO
     Route: 048
     Dates: start: 20090904, end: 20090914

REACTIONS (3)
  - ABNORMAL DREAMS [None]
  - CHILLS [None]
  - DRUG HYPERSENSITIVITY [None]
